FAERS Safety Report 6745487-4 (Version None)
Quarter: 2010Q2

REPORT INFORMATION
  Report Type: 
  Country: None (occurrence: None)
  Receive Date: 20100528
  Receipt Date: 20100517
  Transmission Date: 20101027
  Serious: Yes (Other)
  Sender: FDA-Public Use
  Company Number: CA-JNJFOC-20090708622

PATIENT
  Sex: Female
  Weight: 46 kg

DRUGS (11)
  1. REMICADE [Suspect]
     Indication: CROHN'S DISEASE
     Dosage: RECEIVED 5 INFUSIONS
     Route: 042
  2. REMICADE [Suspect]
     Route: 042
  3. REMICADE [Suspect]
     Route: 042
  4. REMICADE [Suspect]
     Route: 042
  5. REMICADE [Suspect]
     Dosage: RECEIVED 3 INFUSIONS
     Route: 042
  6. REMICADE [Suspect]
     Route: 042
  7. IMURAN [Suspect]
     Indication: CROHN'S DISEASE
     Dosage: USED FOR MAINTENANCE/REMISSION
  8. IMURAN [Suspect]
     Dosage: AM DOSE
  9. BENADRYL [Concomitant]
     Indication: PREMEDICATION
     Route: 048
  10. HYDROCORTISONE [Concomitant]
     Indication: PREMEDICATION
     Route: 042
  11. TYLENOL (CAPLET) [Concomitant]
     Indication: PREMEDICATION
     Route: 048

REACTIONS (2)
  - ANAEMIA [None]
  - LYMPHOPROLIFERATIVE DISORDER [None]
